FAERS Safety Report 22619282 (Version 1)
Quarter: 2023Q2

REPORT INFORMATION
  Report Type: Spontaneous
  Country: US (occurrence: US)
  Receive Date: 20230620
  Receipt Date: 20230620
  Transmission Date: 20230722
  Serious: No
  Sender: FDA-Public Use
  Company Number: US-drreddys-SPO/USA/23/0166147

PATIENT
  Age: 24 Year
  Sex: Female

DRUGS (1)
  1. ZENATANE [Suspect]
     Active Substance: ISOTRETINOIN
     Indication: Product used for unknown indication
     Dosage: RMA ISSUE DATE  24 FEBRUARY 2023 03:42:12 PM, 30 MARCH 2023 10:15:52 AM, 27 APRIL 2023 02:55:31 PM

REACTIONS (1)
  - Adverse drug reaction [Unknown]
